FAERS Safety Report 21595502 (Version 1)
Quarter: 2022Q4

REPORT INFORMATION
  Report Type: Spontaneous
  Country: HR (occurrence: HR)
  Receive Date: 20221115
  Receipt Date: 20221115
  Transmission Date: 20230112
  Serious: Yes (Other)
  Sender: FDA-Public Use
  Company Number: HR-BAYER-2022P020897

PATIENT
  Age: 74 Year

DRUGS (2)
  1. RIVAROXABAN [Suspect]
     Active Substance: RIVAROXABAN
     Indication: Intermittent claudication
     Dosage: 2.5 MG, BID
     Route: 048
  2. ANDOL [Concomitant]
     Active Substance: ASPIRIN
     Indication: Intermittent claudication
     Dosage: 100 MG 1X1
     Dates: start: 202110

REACTIONS (7)
  - Femoral artery aneurysm [Unknown]
  - Intrahepatic portal hepatic venous fistula [Unknown]
  - Arteriovenous fistula thrombosis [Unknown]
  - Peripheral artery occlusion [Unknown]
  - Peripheral artery stenosis [Unknown]
  - Pain in extremity [Unknown]
  - Gait inability [Unknown]

NARRATIVE: CASE EVENT DATE: 20220901
